FAERS Safety Report 12495548 (Version 1)
Quarter: 2016Q2

REPORT INFORMATION
  Report Type: Spontaneous
  Country: JP (occurrence: JP)
  Receive Date: 20160624
  Receipt Date: 20160624
  Transmission Date: 20160815
  Serious: Yes (Hospitalization)
  Sender: FDA-Public Use
  Company Number: JP-BAYER-2016-119450

PATIENT
  Age: 5 Year
  Sex: Male

DRUGS (3)
  1. ACETYLSALICYLIC ACID({=100 MG) [Suspect]
     Active Substance: ASPIRIN
     Indication: KAWASAKI^S DISEASE
     Dosage: 30 MG/KG, QD
     Route: 048
  2. PREDNISOLONE. [Concomitant]
     Active Substance: PREDNISOLONE
     Indication: KAWASAKI^S DISEASE
     Dosage: 2 MG/KG, QD
  3. IMMUNOGLOBULIN [Concomitant]
     Active Substance: HUMAN IMMUNOGLOBULIN G
     Indication: KAWASAKI^S DISEASE
     Dosage: UNK
     Route: 042

REACTIONS (2)
  - Pyrexia [Recovered/Resolved]
  - Inflammatory marker increased [None]
